FAERS Safety Report 17812918 (Version 1)
Quarter: 2020Q2

REPORT INFORMATION
  Report Type: Report from Study
  Country: ES (occurrence: ES)
  Receive Date: 20200521
  Receipt Date: 20200521
  Transmission Date: 20200714
  Serious: Yes (Hospitalization)
  Sender: FDA-Public Use
  Company Number: ES-TEVA-2020-ES-1237172

PATIENT
  Age: 80 Year
  Sex: Male

DRUGS (6)
  1. METFORMINA (1359A) [Concomitant]
     Active Substance: METFORMIN HYDROCHLORIDE
     Indication: DIABETES MELLITUS
     Dosage: 850 MG
     Route: 048
     Dates: start: 20101013, end: 20170509
  2. SUMIAL 40 MG COMPRIMIDOS RECUBIERTOS CON PELICULA , 50 COMPRIMIDOS [Concomitant]
     Dosage: 125 MG
     Route: 048
     Dates: end: 20170509
  3. ZYLORIC 100 MG COMPRIMIDOS, 100 COMPRIMIDOS [Interacting]
     Active Substance: ALLOPURINOL
     Dosage: 100 MG
     Route: 048
     Dates: end: 20160509
  4. SINEMET [Interacting]
     Active Substance: CARBIDOPA\LEVODOPA
     Indication: PARKINSON^S DISEASE
     Dosage: 125 MG
     Dates: start: 20160219
  5. ALDOCUMAR 1 MG COMPRIMIDOS, 40 COMPRIMIDOS [Interacting]
     Active Substance: WARFARIN SODIUM
     Indication: ATRIAL FIBRILLATION
     Route: 048
     Dates: start: 2009
  6. SIMVASTATINA (1023A) [Suspect]
     Active Substance: SIMVASTATIN
     Indication: DYSLIPIDAEMIA
     Dosage: 20 MG
     Route: 048
     Dates: start: 20101126, end: 20170509

REACTIONS (2)
  - Haemorrhage intracranial [Not Recovered/Not Resolved]
  - Drug interaction [Unknown]

NARRATIVE: CASE EVENT DATE: 20170509
